FAERS Safety Report 5011555-0 (Version None)
Quarter: 2006Q2

REPORT INFORMATION
  Report Type: 
  Country: None (occurrence: None)
  Receive Date: 20060524
  Receipt Date: 20060508
  Transmission Date: 20061013
  Serious: Yes (Other)
  Sender: FDA-Public Use
  Company Number: 2006BI007150

PATIENT
  Age: 62 Year
  Sex: Female
  Weight: 125 kg

DRUGS (5)
  1. NATALIZUMAB (NATALIZUMAB)  (300 MG) [Suspect]
     Indication: CROHN'S DISEASE
     Dosage: 300 MG; QM; IV
     Route: 042
     Dates: start: 20040115, end: 20040526
  2. QUANTALAN [Concomitant]
  3. URSO FALK [Concomitant]
  4. CELEBREX [Concomitant]
  5. AZATHIOPRINE [Concomitant]

REACTIONS (12)
  - ABDOMINAL ABSCESS [None]
  - ABDOMINAL PAIN [None]
  - ANASTOMOTIC LEAK [None]
  - BILE DUCT CANCER [None]
  - COLONIC STENOSIS [None]
  - HAEMATOMA INFECTION [None]
  - HEPATIC STEATOSIS [None]
  - LIVER ABSCESS [None]
  - LUNG DISORDER [None]
  - PERITONITIS [None]
  - RENAL IMPAIRMENT [None]
  - WOUND DEHISCENCE [None]
